FAERS Safety Report 19163893 (Version 1)
Quarter: 2021Q2

REPORT INFORMATION
  Report Type: Spontaneous
  Country: CA (occurrence: CA)
  Receive Date: 20210421
  Receipt Date: 20210421
  Transmission Date: 20210717
  Serious: Yes (Other)
  Sender: FDA-Public Use
  Company Number: CA-TAKEDA-2021TUS023893

PATIENT
  Age: 69 Year
  Sex: Male

DRUGS (32)
  1. POTASSIUM [Concomitant]
     Active Substance: POTASSIUM
  2. COPPER [Concomitant]
     Active Substance: COPPER
  3. MANGANESE [Concomitant]
     Active Substance: MANGANESE CHLORIDE
  4. HUMAN NORMAL IMMUNOGLOBULIN [Suspect]
     Active Substance: HUMAN IMMUNOGLOBULIN G
     Indication: PRIMARY IMMUNODEFICIENCY SYNDROME
     Dosage: 10 GRAM, 1/WEEK
     Route: 058
  5. ERGOCALCIFEROL. [Concomitant]
     Active Substance: ERGOCALCIFEROL
  6. FOLIC ACID. [Concomitant]
     Active Substance: FOLIC ACID
  7. MYCOPHENOLIC ACID. [Concomitant]
     Active Substance: MYCOPHENOLIC ACID
     Dosage: 360 MILLIGRAM, BID
  8. INOSITOL [Concomitant]
     Active Substance: INOSITOL
  9. PANTOTHENIC ACID [Concomitant]
     Active Substance: PANTOTHENIC ACID
  10. RIBOFLAVIN [Concomitant]
     Active Substance: RIBOFLAVIN
  11. CALCIUM [Concomitant]
     Active Substance: CALCIUM
  12. HYDROXYUREA. [Concomitant]
     Active Substance: HYDROXYUREA
  13. MYCOPHENOLIC ACID. [Concomitant]
     Active Substance: MYCOPHENOLIC ACID
     Dosage: 720 MILLIGRAM
  14. SELENIUM [Concomitant]
     Active Substance: SELENIUM
  15. VITAMIN B1 [Concomitant]
     Active Substance: THIAMINE HYDROCHLORIDE
  16. VITAMIN E NOS [Concomitant]
     Active Substance: .ALPHA.-TOCOPHEROL
  17. ZINC. [Concomitant]
     Active Substance: ZINC
  18. LASIX [Concomitant]
     Active Substance: FUROSEMIDE
  19. PANTOLOC [PANTOPRAZOLE] [Concomitant]
     Active Substance: PANTOPRAZOLE SODIUM
  20. NICOTINAMIDE [Concomitant]
     Active Substance: NIACINAMIDE
  21. PYRIDOXINE HYDROCHLORIDE. [Concomitant]
     Active Substance: PYRIDOXINE HYDROCHLORIDE
  22. HIZENTRA [Concomitant]
     Active Substance: HUMAN IMMUNOGLOBULIN G
     Route: 058
  23. MAGNESIUM [Concomitant]
     Active Substance: MAGNESIUM
  24. VITAMIN C [Concomitant]
     Active Substance: ASCORBIC ACID
  25. AMLODIPINE [Concomitant]
     Active Substance: AMLODIPINE BESYLATE
  26. ASA [Concomitant]
     Active Substance: ASPIRIN
     Indication: THROMBOCYTOSIS
     Dosage: 81.0 MILLIGRAM, QD
  27. DICLOFENAC SODIUM. [Concomitant]
     Active Substance: DICLOFENAC SODIUM
  28. CHROMIUM [Concomitant]
     Active Substance: CHROMIC CHLORIDE\CHROMIUM
  29. POTASSIUM [Concomitant]
     Active Substance: POTASSIUM
  30. VITAMIN A [RETINOL ACETATE] [Concomitant]
  31. VITAMIN B COMPLEX [Concomitant]
     Active Substance: CYANOCOBALAMIN\DEXPANTHENOL\NIACINAMIDE\PYRIDOXINE HYDROCHLORIDE\RIBOFLAVIN 5^-PHOSPHATE SODIUM\THIAMINE HYDROCHLORIDE\VITAMIN B COMPLEX
  32. VITAMIN B12 [Concomitant]
     Active Substance: CYANOCOBALAMIN

REACTIONS (2)
  - Essential thrombocythaemia [Not Recovered/Not Resolved]
  - Blood potassium decreased [Not Recovered/Not Resolved]
